FAERS Safety Report 8953830 (Version 1)
Quarter: 2012Q4

REPORT INFORMATION
  Report Type: 
  Country: GB (occurrence: GB)
  Receive Date: 20121206
  Receipt Date: 20121206
  Transmission Date: 20130627
  Serious: Yes (Other)
  Sender: FDA-Public Use
  Company Number: GB-009507513-1109GBR00056B1

PATIENT

DRUGS (6)
  1. ISENTRESS [Suspect]
     Indication: HIV INFECTION
     Route: 064
  2. TRUVADA [Concomitant]
     Route: 064
  3. NEVIRAPINE [Concomitant]
     Route: 064
  4. ZIDOVUDINE [Concomitant]
     Route: 064
  5. RITONAVIR [Concomitant]
     Route: 064
  6. ATAZANAVIR [Concomitant]
     Route: 064

REACTIONS (2)
  - Premature baby [Unknown]
  - No adverse event [Unknown]
